FAERS Safety Report 9387266 (Version 3)
Quarter: 2013Q3

REPORT INFORMATION
  Report Type: Report from Study
  Country: JP (occurrence: JP)
  Receive Date: 20130708
  Receipt Date: 20130827
  Transmission Date: 20140515
  Serious: Yes (Death, Hospitalization)
  Sender: FDA-Public Use
  Company Number: JP-JNJFOC-20130619173

PATIENT
  Age: 77 Year
  Sex: Female
  Weight: 49 kg

DRUGS (18)
  1. ONEDURO [Suspect]
     Indication: CANCER PAIN
     Route: 062
     Dates: start: 20121226, end: 20121227
  2. ONEDURO [Suspect]
     Indication: CANCER PAIN
     Route: 062
     Dates: start: 20121228
  3. RISPERDAL [Suspect]
     Indication: INSOMNIA
     Route: 048
     Dates: start: 20121228
  4. OPSO [Concomitant]
     Indication: CANCER PAIN
     Dosage: RESCUE DOSE 10 MG 2 TIMES PER DAY
     Route: 048
     Dates: start: 20121229
  5. OPSO [Concomitant]
     Indication: CANCER PAIN
     Route: 048
     Dates: start: 20121225, end: 20121226
  6. OPSO [Concomitant]
     Indication: CANCER PAIN
     Dosage: RESCUE DOSE
     Route: 048
     Dates: start: 20121226, end: 20121226
  7. OPSO [Concomitant]
     Indication: CANCER PAIN
     Dosage: RESCUE DOSE
     Route: 048
     Dates: start: 20121227, end: 20121227
  8. OPSO [Concomitant]
     Indication: CANCER PAIN
     Dosage: RESCUE DOSE
     Route: 048
     Dates: start: 20121228, end: 20121228
  9. NOVAMIN [Concomitant]
     Indication: PROPHYLAXIS
     Route: 048
     Dates: start: 20121226
  10. MAGMITT [Concomitant]
     Indication: PROPHYLAXIS
     Route: 048
     Dates: start: 20121226
  11. MYSLEE [Concomitant]
     Indication: INSOMNIA
     Route: 048
     Dates: start: 20121226
  12. FORSENID [Concomitant]
     Indication: PROPHYLAXIS
     Route: 048
     Dates: start: 20121226
  13. NAUZELIN [Concomitant]
     Indication: PROPHYLAXIS
     Route: 054
     Dates: start: 20121226
  14. VOLTAREN [Concomitant]
     Indication: CANCER PAIN
     Route: 054
  15. TAKEPRON [Concomitant]
     Indication: PROPHYLAXIS
     Route: 048
     Dates: start: 20121229
  16. DESYREL [Concomitant]
     Indication: INSOMNIA
     Route: 048
     Dates: start: 20121228, end: 20121229
  17. VEEN-D [Concomitant]
     Indication: CANCER PAIN
     Route: 041
     Dates: start: 20121229
  18. BFLUID [Concomitant]
     Indication: CANCER PAIN
     Route: 041
     Dates: start: 20121229

REACTIONS (6)
  - Head and neck cancer [Fatal]
  - Bladder cancer [Fatal]
  - Pain [Not Recovered/Not Resolved]
  - Drug intolerance [Unknown]
  - Off label use [Unknown]
  - Inappropriate schedule of drug administration [Unknown]
